FAERS Safety Report 4431183-5 (Version None)
Quarter: 2004Q3

REPORT INFORMATION
  Report Type: 
  Country: None (occurrence: None)
  Receive Date: 20040824
  Receipt Date: 20040820
  Transmission Date: 20050211
  Serious: Yes (Death)
  Sender: FDA-Public Use
  Company Number: PHBS2004JP10892

PATIENT
  Age: 70 Year
  Sex: Female

DRUGS (1)
  1. STARSIS #AJ [Suspect]
     Route: 048

REACTIONS (1)
  - JAUNDICE [None]
